FAERS Safety Report 5606185-3 (Version None)
Quarter: 2008Q1

REPORT INFORMATION
  Report Type: 
  Country: None (occurrence: None)
  Receive Date: 20080129
  Receipt Date: 20070116
  Transmission Date: 20080703
  Serious: No
  Sender: FDA-Public Use
  Company Number: A0635888A

PATIENT
  Age: 44 Year
  Sex: Male
  Weight: 109.1 kg

DRUGS (4)
  1. WELLBUTRIN [Suspect]
     Dosage: 600MG PER DAY
  2. SEROQUEL [Suspect]
     Dosage: 1200MG PER DAY
  3. DEPAKOTE [Suspect]
     Dosage: 1500MG PER DAY
  4. TRAZODONE HCL [Suspect]
     Dosage: 200MG PER DAY

REACTIONS (1)
  - OVERDOSE [None]
